FAERS Safety Report 9940539 (Version 1)
Quarter: 2014Q1

REPORT INFORMATION
  Report Type: Spontaneous
  Country: FR (occurrence: FR)
  Receive Date: 20140303
  Receipt Date: 20140303
  Transmission Date: 20141002
  Serious: Yes (Life-Threatening)
  Sender: FDA-Public Use
  Company Number: FR-PFIZER INC-2014056332

PATIENT
  Age: 51 Year
  Sex: Male

DRUGS (3)
  1. INLYTA [Suspect]
     Indication: CLEAR CELL RENAL CELL CARCINOMA
     Dosage: 5 MG, 2X/DAY
     Route: 048
     Dates: start: 20130315, end: 20131210
  2. KARDEGIC [Concomitant]
     Dosage: 75 MG, 1X/DAY
  3. INEXIUM [Concomitant]
     Dosage: 20 MG, 1X/DAY

REACTIONS (1)
  - Cardiogenic shock [Recovered/Resolved]
